FAERS Safety Report 8610983 (Version 3)
Quarter: 2012Q4

REPORT INFORMATION
  Report Type: 
  Country: US (occurrence: US)
  Receive Date: 20120612
  Receipt Date: 20121127
  Transmission Date: 20130627
  Serious: Yes (Hospitalization, Other)
  Sender: FDA-Public Use
  Company Number: US-ASTRAZENECA-2010SE13372

PATIENT
  Age: 73 Year
  Sex: Female

DRUGS (7)
  1. NEXIUM [Suspect]
     Route: 048
  2. NEXIUM [Suspect]
     Route: 048
  3. NEXIUM [Suspect]
     Route: 048
  4. CRESTOR [Suspect]
     Route: 048
  5. CRESTOR [Suspect]
     Route: 048
  6. SEROQUEL [Suspect]
     Route: 048
  7. SYMBICORT [Concomitant]

REACTIONS (9)
  - Fall [Unknown]
  - Ankle fracture [Unknown]
  - Accident [Unknown]
  - Barrett^s oesophagus [Unknown]
  - Memory impairment [Unknown]
  - Blood cholesterol increased [Unknown]
  - Malaise [Unknown]
  - Drug dose omission [Unknown]
  - Intentional drug misuse [Unknown]
